FAERS Safety Report 4286940-5 (Version None)
Quarter: 2004Q1

REPORT INFORMATION
  Report Type: 
  Country: None (occurrence: None)
  Receive Date: 20040205
  Receipt Date: 20040129
  Transmission Date: 20041129
  Serious: Yes (Other)
  Sender: FDA-Public Use
  Company Number: USA-2004-0012715

PATIENT
  Age: 38 Year
  Sex: Female

DRUGS (2)
  1. OXYCONTIN [Suspect]
     Indication: CANCER PAIN
     Dates: start: 20031208
  2. MORPHINE SULFATE [Suspect]
     Indication: CANCER PAIN
     Dosage: 20 MG
     Dates: start: 20031208

REACTIONS (4)
  - ABDOMINAL DISTENSION [None]
  - ABDOMINAL PAIN [None]
  - CARCINOMA [None]
  - MALIGNANT NEOPLASM PROGRESSION [None]
